FAERS Safety Report 10749830 (Version 1)
Quarter: 2015Q1

REPORT INFORMATION
  Report Type: Report from Study
  Country: US (occurrence: US)
  Receive Date: 20150129
  Receipt Date: 20150129
  Transmission Date: 20150721
  Serious: Yes (Hospitalization, Other)
  Sender: FDA-Public Use
  Company Number: US-GLAXOSMITHKLINE-US2015GSK008563

PATIENT
  Age: 86 Year
  Sex: Male

DRUGS (8)
  1. ASPIRIN (BABY) [Concomitant]
  2. CARVEDILOL. [Concomitant]
     Active Substance: CARVEDILOL
  3. LEVOTHYROXINE [Concomitant]
     Active Substance: LEVOTHYROXINE
  4. EZETIMIBE. [Concomitant]
     Active Substance: EZETIMIBE
  5. WARFARIN [Concomitant]
     Active Substance: WARFARIN
  6. LASIX [Concomitant]
     Active Substance: FUROSEMIDE
  7. OFATUMUMAB [Suspect]
     Active Substance: OFATUMUMAB
     Indication: CHRONIC LYMPHOCYTIC LEUKAEMIA
     Dosage: 2000 MG, CYC
     Dates: start: 20140801, end: 20141230
  8. ATORVASTATIN [Concomitant]
     Active Substance: ATORVASTATIN

REACTIONS (1)
  - Lung infection [Recovering/Resolving]

NARRATIVE: CASE EVENT DATE: 20150104
